FAERS Safety Report 5170103-5 (Version None)
Quarter: 2006Q4

REPORT INFORMATION
  Report Type: 
  Country: None (occurrence: None)
  Receive Date: 20061212
  Receipt Date: 20061121
  Transmission Date: 20070319
  Serious: Yes (Hospitalization)
  Sender: FDA-Public Use
  Company Number: CA-MERCK-0611CAN00168

PATIENT
  Age: 75 Year
  Sex: Male

DRUGS (7)
  1. HYZAAR [Suspect]
     Indication: HYPERTENSION
     Route: 048
     Dates: start: 20060104, end: 20060227
  2. HYZAAR [Suspect]
     Route: 048
     Dates: start: 20060228
  3. VENLAFAXINE HYDROCHLORIDE [Concomitant]
     Indication: DEPRESSION
     Route: 065
     Dates: start: 20040305
  4. LACTULOSE [Concomitant]
     Route: 065
     Dates: start: 20040101
  5. NIFEDIPINE [Concomitant]
     Indication: ANGINA PECTORIS
     Route: 065
     Dates: start: 20040101
  6. METOPROLOL [Concomitant]
     Indication: HEART RATE
     Route: 065
     Dates: start: 20050302
  7. ASPIRIN [Concomitant]
     Route: 065

REACTIONS (3)
  - BLADDER OBSTRUCTION [None]
  - BLADDER TRANSITIONAL CELL CARCINOMA [None]
  - RENAL FAILURE [None]
